FAERS Safety Report 7844857-0 (Version None)
Quarter: 2011Q4

REPORT INFORMATION
  Report Type: 
  Country: None (occurrence: None)
  Receive Date: 20111025
  Receipt Date: 20111017
  Transmission Date: 20120403
  Serious: Yes (Hospitalization)
  Sender: FDA-Public Use
  Company Number: JP-GLAXOSMITHKLINE-B0757069A

PATIENT
  Age: 6 Decade

DRUGS (2)
  1. LAMICTAL [Suspect]
     Indication: EPILEPSY
     Route: 048
  2. PHENYTOIN SODIUM CAP [Concomitant]
     Indication: EPILEPSY
     Route: 048

REACTIONS (2)
  - PANCYTOPENIA [None]
  - HYPOGAMMAGLOBULINAEMIA [None]
